FAERS Safety Report 4847757-3 (Version None)
Quarter: 2005Q4

REPORT INFORMATION
  Report Type: 
  Country: None (occurrence: None)
  Receive Date: 20051205
  Receipt Date: 20051121
  Transmission Date: 20060501
  Serious: Yes (Hospitalization)
  Sender: FDA-Public Use
  Company Number: 2005P1000572

PATIENT
  Age: 70 Year
  Sex: Female
  Weight: 96 kg

DRUGS (2)
  1. RETEPLASE (RETEPLASE) [Suspect]
     Indication: ACUTE MYOCARDIAL INFARCTION
     Dosage: 5 IU; 1X; IV
     Route: 042
     Dates: start: 20050502, end: 20050502
  2. ABCIXIMAB (ABCIXIMAB) [Suspect]
     Indication: ACUTE MYOCARDIAL INFARCTION
     Dosage: 12 ML; 1X; IV
     Route: 042
     Dates: start: 20050502, end: 20050502

REACTIONS (6)
  - CORONARY ARTERY STENOSIS [None]
  - HAEMATOCRIT DECREASED [None]
  - HAEMOGLOBIN DECREASED [None]
  - PLATELET COUNT INCREASED [None]
  - POST PROCEDURAL HAEMATOMA [None]
  - VESSEL PUNCTURE SITE HAEMORRHAGE [None]
